FAERS Safety Report 24716422 (Version 7)
Quarter: 2025Q4

REPORT INFORMATION
  Report Type: Spontaneous
  Country: JP (occurrence: JP)
  Receive Date: 20241210
  Receipt Date: 20251020
  Transmission Date: 20260118
  Serious: Yes (Death, Hospitalization, Other)
  Sender: ALEXION PHARMACEUTICALS
  Company Number: JP-ASTRAZENECA-240137937_032420_P_1

PATIENT
  Age: 76 Year
  Sex: Male

DRUGS (6)
  1. TEZSPIRE [Suspect]
     Active Substance: TEZEPELUMAB-EKKO
     Indication: Asthma
     Dosage: 210 MILLIGRAM
  2. TEZSPIRE [Suspect]
     Active Substance: TEZEPELUMAB-EKKO
     Dosage: DOSE UNKNOWN
  3. TEZSPIRE [Suspect]
     Active Substance: TEZEPELUMAB-EKKO
     Dosage: 210 MILLIGRAM
  4. TEZSPIRE [Suspect]
     Active Substance: TEZEPELUMAB-EKKO
     Dosage: 210 MILLIGRAM
  5. MONTELUKAST [Concomitant]
     Active Substance: MONTELUKAST
     Dosage: DOSE UNKNOWN
     Route: 065
  6. TRELEGY ELLIPTA [Concomitant]
     Active Substance: FLUTICASONE FUROATE\UMECLIDINIUM BROMIDE\VILANTEROL TRIFENATATE
     Dosage: DOSE UNKNOWN
     Route: 065

REACTIONS (2)
  - Pneumonia [Recovering/Resolving]
  - Death [Fatal]

NARRATIVE: CASE EVENT DATE: 20240209
